FAERS Safety Report 8818344 (Version 2)
Quarter: 2012Q4

REPORT INFORMATION
  Report Type: 
  Country: KR (occurrence: KR)
  Receive Date: 20121001
  Receipt Date: 20121010
  Transmission Date: 20130627
  Serious: No
  Sender: FDA-Public Use
  Company Number: KR-ROCHE-1138913

PATIENT
  Age: 75 Year
  Sex: Female

DRUGS (1)
  1. BONVIVA [Suspect]
     Indication: OSTEOPOROSIS
     Route: 065
     Dates: start: 20120926

REACTIONS (2)
  - Dyspnoea [Recovered/Resolved]
  - Myalgia [Unknown]
